FAERS Safety Report 4331103-8 (Version None)
Quarter: 2004Q1

REPORT INFORMATION
  Report Type: 
  Country: None (occurrence: None)
  Receive Date: 20040331
  Receipt Date: 20040317
  Transmission Date: 20041129
  Serious: Yes (Death)
  Sender: FDA-Public Use
  Company Number: 04USA0006

PATIENT

DRUGS (4)
  1. AGGRASTAT [Suspect]
     Indication: ACUTE CORONARY SYNDROME
     Dosage: INTRAVENOUS
     Route: 042
  2. PLAVIX [Concomitant]
  3. ASPIRIN [Concomitant]
  4. LEPIRUDIN (LEPIRUDIN) (INJECTION) [Concomitant]

REACTIONS (2)
  - HYPOTENSION [None]
  - RETROPERITONEAL HAEMORRHAGE [None]
